FAERS Safety Report 6853970-6 (Version None)
Quarter: 2010Q3

REPORT INFORMATION
  Report Type: 
  Country: None (occurrence: None)
  Receive Date: 20100717
  Receipt Date: 20071220
  Transmission Date: 20110219
  Serious: Yes (Other)
  Sender: FDA-Public Use
  Company Number: US-PFIZER INC-2008000052

PATIENT
  Age: 45 Year
  Sex: Female

DRUGS (3)
  1. CHANTIX [Suspect]
  2. SOMA [Concomitant]
  3. AMBIEN [Concomitant]

REACTIONS (2)
  - AGITATION [None]
  - SUICIDAL IDEATION [None]
